FAERS Safety Report 17300044 (Version 1)
Quarter: 2020Q1

REPORT INFORMATION
  Report Type: Spontaneous
  Country: US (occurrence: US)
  Receive Date: 20200122
  Receipt Date: 20200122
  Transmission Date: 20200409
  Serious: No
  Sender: FDA-Public Use
  Company Number: US-ALLERGAN-1921894US

PATIENT
  Sex: Male

DRUGS (2)
  1. XIIDRA [Concomitant]
     Active Substance: LIFITEGRAST
  2. RESTASIS [Suspect]
     Active Substance: CYCLOSPORINE
     Indication: PRODUCT USED FOR UNKNOWN INDICATION
     Dosage: 2 GTT, BID
     Route: 047
     Dates: start: 201902

REACTIONS (2)
  - Multiple use of single-use product [Unknown]
  - Off label use [Unknown]
